FAERS Safety Report 21049434 (Version 1)
Quarter: 2022Q3

REPORT INFORMATION
  Report Type: Spontaneous
  Country: US (occurrence: None)
  Receive Date: 20220706
  Receipt Date: 20220706
  Transmission Date: 20221026
  Serious: Yes (Other)
  Sender: FDA-Public Use
  Company Number: None

PATIENT
  Age: 46 Year
  Sex: Female
  Weight: 153 kg

DRUGS (1)
  1. CIPROFLOXACIN [Suspect]
     Active Substance: CIPROFLOXACIN
     Indication: Infection
     Dates: start: 20220507, end: 20220511

REACTIONS (10)
  - Tendon pain [None]
  - Gait disturbance [None]
  - Arthralgia [None]
  - Anxiety [None]
  - Paraesthesia [None]
  - Aphasia [None]
  - Nightmare [None]
  - Palpitations [None]
  - Gait disturbance [None]
  - Decreased activity [None]

NARRATIVE: CASE EVENT DATE: 20220509
